FAERS Safety Report 12133746 (Version 2)
Quarter: 2016Q2

REPORT INFORMATION
  Report Type: Spontaneous
  Country: US (occurrence: US)
  Receive Date: 20160301
  Receipt Date: 20160428
  Transmission Date: 20160815
  Serious: Yes (Death, Other)
  Sender: FDA-Public Use
  Company Number: US-ASTRAZENECA-2016SE19449

PATIENT
  Age: 27937 Day
  Sex: Female
  Weight: 74.4 kg

DRUGS (9)
  1. BYETTA [Suspect]
     Active Substance: EXENATIDE
     Indication: TYPE 2 DIABETES MELLITUS
     Dosage: 5 MCG/0.02 ML
     Route: 065
     Dates: start: 20130123
  2. COZAAR [Concomitant]
     Active Substance: LOSARTAN POTASSIUM
     Route: 048
     Dates: start: 20140610
  3. PEPCID [Concomitant]
     Active Substance: FAMOTIDINE
     Route: 048
     Dates: start: 20140517
  4. BYETTA [Suspect]
     Active Substance: EXENATIDE
     Indication: TYPE 2 DIABETES MELLITUS
     Route: 065
     Dates: start: 20130124, end: 20140220
  5. ESIDRIX/HYDRODIURIL [Concomitant]
     Route: 048
     Dates: start: 20130131
  6. GLUCOTROL [Concomitant]
     Active Substance: GLIPIZIDE
     Route: 048
     Dates: start: 20140512
  7. AGGRENOX [Concomitant]
     Active Substance: ASPIRIN\DIPYRIDAMOLE
     Dosage: 200-25 MG, DAILY
     Route: 048
     Dates: start: 20131209
  8. TRILIPIX [Concomitant]
     Active Substance: FENOFIBRIC ACID
     Route: 048
     Dates: start: 20140610
  9. LASIX [Concomitant]
     Active Substance: FUROSEMIDE
     Route: 048
     Dates: start: 20140520

REACTIONS (3)
  - Pancreatic carcinoma metastatic [Fatal]
  - Metastases to liver [Fatal]
  - Metastases to lymph nodes [Unknown]

NARRATIVE: CASE EVENT DATE: 20140311
